FAERS Safety Report 9677168 (Version 1)
Quarter: 2013Q4

REPORT INFORMATION
  Report Type: Spontaneous
  Country: FR (occurrence: FR)
  Receive Date: 20131108
  Receipt Date: 20131108
  Transmission Date: 20140711
  Serious: Yes (Hospitalization)
  Sender: FDA-Public Use
  Company Number: FR-ROCHE-1298054

PATIENT
  Age: 53 Year
  Sex: Male

DRUGS (3)
  1. AVASTIN [Suspect]
     Indication: ADENOCARCINOMA
     Route: 065
     Dates: start: 20120717, end: 20120904
  2. ALIMTA [Suspect]
     Indication: ADENOCARCINOMA
     Route: 041
     Dates: start: 20120717, end: 20120904
  3. CISPLATINE [Suspect]
     Indication: ADENOCARCINOMA
     Route: 041
     Dates: start: 20120717, end: 20120904

REACTIONS (1)
  - Pneumothorax [Recovered/Resolved]
